FAERS Safety Report 8047562-3 (Version None)
Quarter: 2012Q1

REPORT INFORMATION
  Report Type: 
  Country: None (occurrence: None)
  Receive Date: 20120116
  Receipt Date: 20120105
  Transmission Date: 20120608
  Serious: Yes (Death)
  Sender: FDA-Public Use
  Company Number: US-GLAXOSMITHKLINE-A0918369A

PATIENT
  Age: 59 Year
  Sex: Male
  Weight: 95.9 kg

DRUGS (7)
  1. AVANDIA [Suspect]
     Indication: DIABETES MELLITUS
     Dosage: 4MG PER DAY
     Route: 048
     Dates: start: 20010201, end: 20020409
  2. LODINE [Concomitant]
  3. CLARITIN [Concomitant]
  4. NORGESIC FORTE [Concomitant]
  5. WELLBUTRIN SR [Concomitant]
  6. INDERAL [Concomitant]
  7. LIPITOR [Concomitant]

REACTIONS (2)
  - CARDIAC ARREST [None]
  - CARDIOVASCULAR DISORDER [None]
